FAERS Safety Report 21515178 (Version 1)
Quarter: 2022Q4

REPORT INFORMATION
  Report Type: Spontaneous
  Country: AR (occurrence: AR)
  Receive Date: 20221027
  Receipt Date: 20221027
  Transmission Date: 20230112
  Serious: Yes (Other)
  Sender: FDA-Public Use
  Company Number: AR-PFIZER INC-PV202200086854

PATIENT
  Age: 71 Year
  Sex: Male

DRUGS (1)
  1. SUTENT [Suspect]
     Active Substance: SUNITINIB MALATE
     Dosage: 50 MG

REACTIONS (13)
  - Costal cartilage fracture [Unknown]
  - Granulomatous liver disease [Unknown]
  - Diverticulum [Unknown]
  - Blood uric acid increased [Unknown]
  - Arteriosclerosis [Unknown]
  - Lymphadenopathy [Unknown]
  - Prostatic calcification [Unknown]
  - Prostatomegaly [Unknown]
  - Lumbosacral radiculopathy [Unknown]
  - Pulmonary calcification [Unknown]
  - Vascular calcification [Unknown]
  - Hiatus hernia [Unknown]
  - Haemoglobin decreased [Unknown]

NARRATIVE: CASE EVENT DATE: 20220408
